FAERS Safety Report 4919815-6 (Version None)
Quarter: 2006Q1

REPORT INFORMATION
  Report Type: 
  Country: None (occurrence: None)
  Receive Date: 20060216
  Receipt Date: 20060130
  Transmission Date: 20060701
  Serious: Yes (Hospitalization)
  Sender: FDA-Public Use
  Company Number: FR200601005239

PATIENT
  Age: 74 Year
  Sex: Female

DRUGS (4)
  1. FORTEO [Suspect]
     Indication: OSTEOPOROSIS
     Dosage: 20 ?G, DAILY (1/D), SUBCUTANEOUS
     Route: 058
     Dates: start: 20040909
  2. FORTEO PEN(FORTEO PEN) [Concomitant]
  3. ... [Concomitant]
  4. TRAMADOL HCL [Concomitant]

REACTIONS (2)
  - FALL [None]
  - HUMERUS FRACTURE [None]
